FAERS Safety Report 5874914-X (Version None)
Quarter: 2008Q3

REPORT INFORMATION
  Report Type: 
  Country: None (occurrence: None)
  Receive Date: 20080909
  Receipt Date: 20080901
  Transmission Date: 20090109
  Serious: Yes (Hospitalization)
  Sender: FDA-Public Use
  Company Number: GB-AMGEN-US305548

PATIENT
  Sex: Female

DRUGS (6)
  1. ENBREL [Suspect]
     Indication: RHEUMATOID ARTHRITIS
     Dosage: 50MG, FREQUENCY UNKNOWN
     Route: 058
     Dates: start: 20060911, end: 20080723
  2. WARFARIN SODIUM [Concomitant]
     Indication: DEEP VEIN THROMBOSIS
     Dosage: UNKNOWN
     Route: 048
  3. METHOTREXATE [Concomitant]
     Route: 048
     Dates: start: 20010101
  4. PREDNISOLONE [Concomitant]
     Dosage: 10MG, FREQUENCY UNKNOWN
     Route: 048
  5. CELEBREX [Concomitant]
     Dosage: UNKNOWN
     Route: 048
  6. ACETAMINOPHEN W/ CODEINE [Concomitant]
     Dosage: UNKNOWN
     Route: 048

REACTIONS (2)
  - ENCEPHALITIS [None]
  - STATUS EPILEPTICUS [None]
